FAERS Safety Report 20485396 (Version 2)
Quarter: 2022Q1

REPORT INFORMATION
  Report Type: Spontaneous
  Country: US (occurrence: US)
  Receive Date: 20220217
  Receipt Date: 20220301
  Transmission Date: 20220423
  Serious: No
  Sender: FDA-Public Use
  Company Number: US-PFIZER INC-202200212109

PATIENT
  Age: 69 Year
  Sex: Male
  Weight: 52.608 kg

DRUGS (14)
  1. VINCRISTINE SULFATE [Suspect]
     Active Substance: VINCRISTINE SULFATE
     Indication: Lymphoma
     Dosage: RD5 OF .45MG DAILY FOR 4 DAYS THEN REDUCED TO 2 FOR 4 ROUNDS
     Dates: start: 202105
  2. VINCRISTINE SULFATE [Suspect]
     Active Substance: VINCRISTINE SULFATE
     Dosage: UNK, EVERY 3 WEEKS (6 ROUNDS)
     Route: 042
     Dates: end: 20210912
  3. ETOPOSIDE [Concomitant]
     Active Substance: ETOPOSIDE
     Dosage: UNK
     Dates: start: 202105
  4. RUBICIN [DOXORUBICIN HYDROCHLORIDE] [Concomitant]
     Dosage: UNK
     Dates: start: 202105
  5. RITUXAN [Concomitant]
     Active Substance: RITUXIMAB
     Dosage: UNK
     Dates: start: 202105
  6. CYTOXAN [Concomitant]
     Active Substance: CYCLOPHOSPHAMIDE
     Dosage: UNK
     Dates: start: 202105
  7. ALLOPURINOL [Concomitant]
     Active Substance: ALLOPURINOL
     Dosage: UNK
  8. METOPROLOL [Concomitant]
     Active Substance: METOPROLOL
     Dosage: UNK
  9. METHOTREXATE [Concomitant]
     Active Substance: METHOTREXATE
     Dosage: UNK
  10. CRESTOR [Concomitant]
     Active Substance: ROSUVASTATIN CALCIUM
     Dosage: UNK
  11. ZOFRAN [Concomitant]
     Active Substance: ONDANSETRON HYDROCHLORIDE
     Dosage: UNK
  12. FLUCONAZOLE [Concomitant]
     Active Substance: FLUCONAZOLE
  13. DECADRAN [DEXAMETHASONE] [Concomitant]
     Dosage: UNK
  14. PREDNISONE [Concomitant]
     Active Substance: PREDNISONE
     Dosage: UNK

REACTIONS (1)
  - Hypoaesthesia [Not Recovered/Not Resolved]

NARRATIVE: CASE EVENT DATE: 20211110
